FAERS Safety Report 11445209 (Version 1)
Quarter: 2015Q3

REPORT INFORMATION
  Report Type: Spontaneous
  Country: US (occurrence: None)
  Receive Date: 20150901
  Receipt Date: 20150901
  Transmission Date: 20151125
  Serious: No
  Sender: FDA-Public Use
  Company Number: None

PATIENT
  Age: 91 Year
  Sex: Female
  Weight: 40.82 kg

DRUGS (7)
  1. CALCIUM [Concomitant]
     Active Substance: CALCIUM
  2. TIMOLOL. [Concomitant]
     Active Substance: TIMOLOL
  3. ALDACTONE [Concomitant]
     Active Substance: SPIRONOLACTONE
  4. PREDNISONE. [Concomitant]
     Active Substance: PREDNISONE
  5. TENORMIN [Suspect]
     Active Substance: ATENOLOL
     Route: 048
     Dates: start: 20150209, end: 20150831
  6. VITAMIN D [Concomitant]
     Active Substance: CHOLECALCIFEROL
  7. ECOTRIN [Concomitant]
     Active Substance: ASPIRIN

REACTIONS (3)
  - Product quality issue [None]
  - Extrasystoles [None]
  - Blood pressure abnormal [None]

NARRATIVE: CASE EVENT DATE: 20150818
